FAERS Safety Report 8577736-4 (Version None)
Quarter: 2012Q3

REPORT INFORMATION
  Report Type: 
  Country: None (occurrence: None)
  Receive Date: 20120808
  Receipt Date: 20120730
  Transmission Date: 20120928
  Serious: Yes (Hospitalization)
  Sender: FDA-Public Use
  Company Number: FR-BRISTOL-MYERS SQUIBB COMPANY-16828873

PATIENT
  Age: 48 Year
  Sex: Female

DRUGS (13)
  1. AUGMENTIN '500' [Concomitant]
  2. PROTHIADEN [Concomitant]
  3. DIAMICRON [Concomitant]
  4. LEVEMIR [Concomitant]
  5. PYOSTACINE [Concomitant]
  6. YERVOY [Suspect]
     Dosage: 1DF= 5MG/ML
     Route: 042
     Dates: start: 20120615, end: 20120615
  7. METFORMIN HCL [Concomitant]
     Dosage: 1DF= 700-UNITS NOS
  8. LORAZEPAM [Concomitant]
  9. LITHIUM CARBONATE [Concomitant]
  10. ESCITALOPRAM [Concomitant]
  11. JANUVIA [Concomitant]
  12. NOVORAPID [Concomitant]
  13. IMODIUM [Concomitant]

REACTIONS (1)
  - DIABETIC KETOACIDOSIS [None]
